FAERS Safety Report 8017630-0 (Version None)
Quarter: 2012Q1

REPORT INFORMATION
  Report Type: 
  Country: None (occurrence: None)
  Receive Date: 20120103
  Receipt Date: 20111221
  Transmission Date: 20120608
  Serious: Yes (Other)
  Sender: FDA-Public Use
  Company Number: CA-ELI_LILLY_AND_COMPANY-CA201112006509

PATIENT
  Age: 57 Year
  Sex: Female

DRUGS (6)
  1. MULTI-VITAMINS [Concomitant]
  2. CALCIUM ACETATE [Concomitant]
  3. VITAMIN C [Concomitant]
  4. VITAMIN D [Concomitant]
  5. FORTEO [Suspect]
     Indication: OSTEOPOROSIS
     Dosage: 20 UG, QD
     Route: 058
     Dates: start: 20111202, end: 20111218
  6. ROBAXACET [Concomitant]

REACTIONS (1)
  - THYROID CANCER [None]
